FAERS Safety Report 8875569 (Version 2)
Quarter: 2013Q3

REPORT INFORMATION
  Report Type: Report from Study
  Country: ZA (occurrence: ZA)
  Receive Date: 20121029
  Receipt Date: 20130715
  Transmission Date: 20140515
  Serious: Yes (Death)
  Sender: FDA-Public Use
  Company Number: ZA-ROCHE-1150120

PATIENT
  Age: 68 Year
  Sex: Male
  Weight: 114 kg

DRUGS (1)
  1. RANIBIZUMAB [Suspect]
     Indication: PRODUCT USED FOR UNKNOWN INDICATION
     Route: 050

REACTIONS (1)
  - Gastric cancer [Fatal]
